FAERS Safety Report 6581546-7 (Version None)
Quarter: 2010Q1

REPORT INFORMATION
  Report Type: 
  Country: None (occurrence: None)
  Receive Date: 20100208
  Receipt Date: 20100121
  Transmission Date: 20100710
  Serious: Yes (Disabling)
  Sender: FDA-Public Use
  Company Number: CV20100037

PATIENT
  Age: 54 Day
  Sex: Female

DRUGS (2)
  1. PROPOFOL [Suspect]
     Indication: INDUCTION OF ANAESTHESIA
  2. ANAESTHETICS (ANAESTHETICS) [Concomitant]

REACTIONS (5)
  - BRAIN INJURY [None]
  - COGNITIVE DISORDER [None]
  - CONVULSION [None]
  - MICROCEPHALY [None]
  - NUCLEAR MAGNETIC RESONANCE IMAGING BRAIN ABNORMAL [None]
